FAERS Safety Report 17472029 (Version 4)
Quarter: 2021Q1

REPORT INFORMATION
  Report Type: Spontaneous
  Country: US (occurrence: US)
  Receive Date: 20200228
  Receipt Date: 20210225
  Transmission Date: 20210419
  Serious: Yes (Other)
  Sender: FDA-Public Use
  Company Number: US-009507513-1812USA007452

PATIENT
  Sex: Male

DRUGS (3)
  1. ZOSTAVAX [Suspect]
     Active Substance: VARICELLA-ZOSTER VIRUS STRAIN OKA/MERCK LIVE ANTIGEN
     Indication: PROPHYLAXIS
     Route: 058
     Dates: start: 20150528
  2. TIMOLOL. [Concomitant]
     Active Substance: TIMOLOL
     Indication: GLAUCOMA
     Dosage: 0.5 OPHTALMOLOGIC SOLUTION, 2X DAILY
     Dates: start: 20150528
  3. STERILE DILUENT (WATER) [Suspect]
     Active Substance: WATER
     Indication: PROPHYLAXIS
     Dosage: 0.65 MILLILITER, ONCE, LEFT ARM
     Route: 058
     Dates: start: 20150528, end: 20150528

REACTIONS (13)
  - Arrhythmia [Unknown]
  - Atrial fibrillation [Unknown]
  - Cardiac failure [Unknown]
  - Middle insomnia [Unknown]
  - Complication associated with device [Unknown]
  - Hypertensive heart disease [Unknown]
  - Prostatomegaly [Unknown]
  - Depression [Unknown]
  - Vaccination failure [Unknown]
  - Overweight [Unknown]
  - Post herpetic neuralgia [Not Recovered/Not Resolved]
  - Hypertension [Unknown]
  - Herpes zoster [Not Recovered/Not Resolved]

NARRATIVE: CASE EVENT DATE: 20161228
